FAERS Safety Report 9907060 (Version 1)
Quarter: 2014Q1

REPORT INFORMATION
  Report Type: Report from Study
  Country: US (occurrence: US)
  Receive Date: 20140218
  Receipt Date: 20140218
  Transmission Date: 20141002
  Serious: Yes (Hospitalization)
  Sender: FDA-Public Use
  Company Number: US-US-EMD SERONO, INC.-7269327

PATIENT
  Age: 61 Year
  Sex: Female
  Weight: 82 kg

DRUGS (7)
  1. SAIZEN [Suspect]
     Indication: GROWTH HORMONE DEFICIENCY
     Route: 058
     Dates: start: 20130226
  2. SAIZEN [Suspect]
     Indication: PITUITARY TUMOUR BENIGN
     Route: 058
  3. SIMVASTATIN [Concomitant]
     Indication: HYPERLIPIDAEMIA
     Route: 048
  4. LAMICTAL [Concomitant]
     Indication: PRODUCT USED FOR UNKNOWN INDICATION
  5. XYREM [Concomitant]
     Indication: PRODUCT USED FOR UNKNOWN INDICATION
     Route: 048
  6. CLONAZEPAM [Concomitant]
     Indication: PRODUCT USED FOR UNKNOWN INDICATION
  7. CRESTOR                            /01588601/ [Concomitant]
     Indication: HYPERLIPIDAEMIA

REACTIONS (7)
  - Urticaria [Unknown]
  - Depression [Not Recovered/Not Resolved]
  - Protein total decreased [Unknown]
  - Blood urea decreased [Unknown]
  - Bone pain [Not Recovered/Not Resolved]
  - Arthralgia [Recovered/Resolved]
  - Myalgia [Not Recovered/Not Resolved]
